FAERS Safety Report 6349983-3 (Version None)
Quarter: 2009Q3

REPORT INFORMATION
  Report Type: 
  Country: None (occurrence: None)
  Receive Date: 20090911
  Receipt Date: 20090622
  Transmission Date: 20100115
  Serious: No
  Sender: FDA-Public Use
  Company Number: US-ABBOTT-06P-163-0346652-00

PATIENT
  Sex: Female

DRUGS (10)
  1. HUMIRA [Suspect]
     Indication: RHEUMATOID ARTHRITIS
     Route: 058
  2. HUMIRA [Suspect]
     Indication: ANKYLOSING SPONDYLITIS
     Dosage: SYRINGE
     Dates: start: 20030101
  3. QUETIAPINE [Concomitant]
     Indication: DRUG USE FOR UNKNOWN INDICATION
  4. CLONAZEPAM [Concomitant]
     Indication: DRUG USE FOR UNKNOWN INDICATION
  5. LAMOTRIGINE [Concomitant]
     Indication: DRUG USE FOR UNKNOWN INDICATION
  6. CHLORAHYDRATE [Concomitant]
     Indication: DRUG USE FOR UNKNOWN INDICATION
  7. ASAFAX [Concomitant]
     Indication: DRUG USE FOR UNKNOWN INDICATION
  8. WEVUTRIN [Concomitant]
     Indication: DRUG USE FOR UNKNOWN INDICATION
  9. ATACAN [Concomitant]
     Indication: DRUG USE FOR UNKNOWN INDICATION
  10. PROVELLA-14 [Concomitant]
     Indication: DRUG USE FOR UNKNOWN INDICATION

REACTIONS (2)
  - HAEMORRHAGE [None]
  - INCORRECT DOSE ADMINISTERED [None]
